FAERS Safety Report 9973879 (Version 3)
Quarter: 2014Q2

REPORT INFORMATION
  Report Type: Spontaneous
  Country: US (occurrence: US)
  Receive Date: 20140306
  Receipt Date: 20140529
  Transmission Date: 20141212
  Serious: No
  Sender: FDA-Public Use
  Company Number: US-MYLANLABS-2014S1002702

PATIENT
  Age: 30 Year
  Sex: Female
  Weight: 56.7 kg

DRUGS (4)
  1. RABEPRAZOLE SODIUM DELAYED-RELEASE TABLETS [Suspect]
     Indication: GASTROOESOPHAGEAL REFLUX DISEASE
     Route: 048
     Dates: start: 20131205, end: 20140130
  2. RABEPRAZOLE SODIUM DELAYED-RELEASE TABLETS [Suspect]
     Indication: HERNIA
     Route: 048
     Dates: start: 20131205, end: 20140130
  3. ORTHO CYCLEN [Concomitant]
     Indication: CONTRACEPTION
     Route: 048
  4. ZYRTEC [Concomitant]
     Dosage: ALLERGIES
     Route: 048

REACTIONS (2)
  - Urticaria [Recovered/Resolved]
  - Pruritus [Recovered/Resolved]
